FAERS Safety Report 22393846 (Version 1)
Quarter: 2023Q2

REPORT INFORMATION
  Report Type: Spontaneous
  Country: IT (occurrence: IT)
  Receive Date: 20230601
  Receipt Date: 20230601
  Transmission Date: 20230722
  Serious: Yes (Other)
  Sender: FDA-Public Use
  Company Number: IT-ELI_LILLY_AND_COMPANY-IT202305015038

PATIENT
  Age: 56 Year
  Sex: Female

DRUGS (2)
  1. SELPERCATINIB [Suspect]
     Active Substance: SELPERCATINIB
     Indication: Lung adenocarcinoma
     Dosage: 320 MG, DAILY
     Route: 065
     Dates: start: 202111
  2. SELPERCATINIB [Suspect]
     Active Substance: SELPERCATINIB
     Dosage: 80 MG, BID
     Route: 065

REACTIONS (8)
  - Hypertransaminasaemia [Unknown]
  - Malignant neoplasm progression [Unknown]
  - Hyponatraemia [Unknown]
  - Arthralgia [Unknown]
  - Neutropenia [Unknown]
  - Hypocalcaemia [Unknown]
  - Fatigue [Unknown]
  - Hypertension [Unknown]
